FAERS Safety Report 7229834-5 (Version None)
Quarter: 2011Q1

REPORT INFORMATION
  Report Type: 
  Country: None (occurrence: None)
  Receive Date: 20110117
  Receipt Date: 20110111
  Transmission Date: 20110831
  Serious: Yes (Hospitalization, Disabling, Other)
  Sender: FDA-Public Use
  Company Number: US-BAYER-201012807NA

PATIENT
  Sex: Female

DRUGS (9)
  1. BETASERON [Suspect]
     Route: 058
     Dates: start: 20100201, end: 20100322
  2. TOPAMAX [Concomitant]
  3. BETASERON [Suspect]
     Indication: RELAPSING-REMITTING MULTIPLE SCLEROSIS
     Route: 058
     Dates: start: 20100114, end: 20100131
  4. BETASERON [Suspect]
     Route: 058
     Dates: start: 20100602
  5. BETASERON [Suspect]
     Route: 058
     Dates: start: 20100415, end: 20100601
  6. BETASERON [Suspect]
     Route: 058
  7. KLONOPIN [Concomitant]
  8. VITAMIN B-12 [Concomitant]
  9. LAMICTAL [Concomitant]

REACTIONS (22)
  - PAIN [None]
  - FATIGUE [None]
  - CRYING [None]
  - TREMOR [None]
  - MENTAL IMPAIRMENT [None]
  - CONVULSION [None]
  - ABDOMINAL PAIN UPPER [None]
  - PRURITUS [None]
  - FACIAL PAIN [None]
  - QUADRIPLEGIA [None]
  - MENTAL DISORDER [None]
  - CHOKING SENSATION [None]
  - VISION BLURRED [None]
  - DYSPNOEA [None]
  - SURGERY [None]
  - HEADACHE [None]
  - HEAD TITUBATION [None]
  - INJECTION SITE RASH [None]
  - CHILLS [None]
  - INJECTION SITE URTICARIA [None]
  - WHITE BLOOD CELL COUNT DECREASED [None]
  - MUSCLE TIGHTNESS [None]
